FAERS Safety Report 9689527 (Version 1)
Quarter: 2013Q4

REPORT INFORMATION
  Report Type: Spontaneous
  Country: AT (occurrence: AT)
  Receive Date: 20131115
  Receipt Date: 20131115
  Transmission Date: 20140711
  Serious: Yes (Other)
  Sender: FDA-Public Use
  Company Number: AT-ROCHE-1234081

PATIENT
  Age: 59 Year
  Sex: Female
  Weight: 61 kg

DRUGS (27)
  1. HERCEPTIN [Suspect]
     Indication: PRODUCT USED FOR UNKNOWN INDICATION
     Route: 065
     Dates: start: 201208, end: 201212
  2. HERCEPTIN [Suspect]
     Route: 065
     Dates: start: 20120814
  3. XELODA [Suspect]
     Indication: BREAST CANCER
     Route: 048
     Dates: start: 20100708, end: 20100719
  4. BEVACIZUMAB [Suspect]
     Indication: PRODUCT USED FOR UNKNOWN INDICATION
     Route: 065
     Dates: start: 201006, end: 201007
  5. BEVACIZUMAB [Suspect]
     Route: 065
     Dates: start: 201007, end: 201101
  6. BEVACIZUMAB [Suspect]
     Route: 065
     Dates: start: 201101, end: 201103
  7. BEVACIZUMAB [Suspect]
     Route: 065
     Dates: start: 201206
  8. PERTUZUMAB [Suspect]
     Indication: PRODUCT USED FOR UNKNOWN INDICATION
     Route: 065
     Dates: start: 201210, end: 201212
  9. PERTUZUMAB [Suspect]
     Route: 065
     Dates: start: 20121002
  10. PERTUZUMAB [Suspect]
     Route: 065
     Dates: start: 20121023
  11. PERTUZUMAB [Suspect]
     Route: 065
     Dates: start: 20121113
  12. TRASTUZUMAB [Suspect]
     Indication: PRODUCT USED FOR UNKNOWN INDICATION
     Route: 065
     Dates: start: 200809, end: 200909
  13. TRASTUZUMAB [Suspect]
     Route: 065
     Dates: start: 201109, end: 201202
  14. TRASTUZUMAB [Suspect]
     Route: 065
     Dates: start: 201203, end: 201206
  15. TRASTUZUMAB [Suspect]
     Route: 065
     Dates: start: 20121002
  16. TRASTUZUMAB [Suspect]
     Route: 065
     Dates: start: 20121023
  17. TRASTUZUMAB [Suspect]
     Route: 065
     Dates: start: 20121113
  18. TYVERB [Suspect]
     Indication: PRODUCT USED FOR UNKNOWN INDICATION
     Route: 065
     Dates: start: 201207, end: 201208
  19. PACLITAXEL [Suspect]
     Indication: PRODUCT USED FOR UNKNOWN INDICATION
     Route: 065
     Dates: start: 201007, end: 201101
  20. CARBOPLATIN [Suspect]
     Indication: PRODUCT USED FOR UNKNOWN INDICATION
     Route: 065
     Dates: start: 201208, end: 201212
  21. CARBOPLATIN [Suspect]
     Route: 065
     Dates: start: 20120814
  22. CARBOPLATIN [Suspect]
     Route: 065
     Dates: start: 20121002
  23. CARBOPLATIN [Suspect]
     Route: 065
     Dates: start: 20121023
  24. CARBOPLATIN [Suspect]
     Route: 065
     Dates: start: 20121113
  25. LAPATINIB [Suspect]
     Indication: PRODUCT USED FOR UNKNOWN INDICATION
     Route: 065
     Dates: start: 201104, end: 201109
  26. LAPATINIB [Suspect]
     Route: 065
     Dates: start: 201109, end: 201202
  27. VINORELBINE [Suspect]
     Indication: PRODUCT USED FOR UNKNOWN INDICATION
     Route: 048
     Dates: start: 201203, end: 201206

REACTIONS (7)
  - Metastases to central nervous system [Unknown]
  - Metastases to central nervous system [Unknown]
  - Drug intolerance [Recovered/Resolved]
  - Metastases to liver [Unknown]
  - Tumour marker increased [Unknown]
  - Palmar-plantar erythrodysaesthesia syndrome [Recovered/Resolved]
  - Leukopenia [Unknown]
